FAERS Safety Report 9720205 (Version 2)
Quarter: 2013Q4

REPORT INFORMATION
  Report Type: Spontaneous
  Country: VE (occurrence: VE)
  Receive Date: 20131129
  Receipt Date: 20131129
  Transmission Date: 20140711
  Serious: Yes (Hospitalization, Other)
  Sender: FDA-Public Use
  Company Number: VE-ROCHE-1065962

PATIENT
  Age: 52 Year
  Sex: Female

DRUGS (9)
  1. XOLAIR [Suspect]
     Indication: ASTHMA
     Route: 042
     Dates: start: 201105, end: 20111226
  2. XOLAIR [Suspect]
     Route: 042
     Dates: start: 201204
  3. XOLAIR [Suspect]
     Route: 065
     Dates: start: 2011
  4. XOLAIR [Suspect]
     Route: 065
  5. FORADIL [Concomitant]
     Indication: ASTHMA
  6. MIFLONIDE [Concomitant]
     Indication: ASTHMA
  7. MONTELUKAST [Concomitant]
     Indication: ASTHMA
     Route: 048
     Dates: start: 201105
  8. PREDNISONE [Concomitant]
     Indication: ASTHMA
     Route: 048
  9. PANTOPRAZOLE [Concomitant]

REACTIONS (6)
  - Pneumonia [Recovering/Resolving]
  - Hypersensitivity [Recovering/Resolving]
  - Near drowning [Recovering/Resolving]
  - Asthma [Recovering/Resolving]
  - Weight increased [Unknown]
  - Incorrect route of drug administration [Unknown]
